FAERS Safety Report 12677980 (Version 1)
Quarter: 2016Q3

REPORT INFORMATION
  Report Type: Spontaneous
  Country: CN (occurrence: CN)
  Receive Date: 20160823
  Receipt Date: 20160823
  Transmission Date: 20161109
  Serious: Yes (Other)
  Sender: FDA-Public Use
  Company Number: CN-JNJFOC-20160814059

PATIENT

DRUGS (3)
  1. TOPAMAX [Suspect]
     Active Substance: TOPIRAMATE
     Indication: BIPOLAR I DISORDER
     Dosage: STRENGTH: 25MG ONE AT NOON AND ONE IN EVENING
     Route: 048
  2. SEROQUEL [Suspect]
     Active Substance: QUETIAPINE FUMARATE
     Indication: BIPOLAR I DISORDER
     Dosage: ONCE AT NON AND ONE IN THE EVENING
     Route: 048
  3. TOPAMAX [Suspect]
     Active Substance: TOPIRAMATE
     Indication: BIPOLAR I DISORDER
     Dosage: STRENGTH: 50 TO 200 MG ??EIGHT WEEKS
     Route: 048

REACTIONS (11)
  - Vomiting [Unknown]
  - White blood cell count decreased [Unknown]
  - Product use issue [Unknown]
  - Decreased appetite [Unknown]
  - Weight increased [Unknown]
  - Electrocardiogram ST-T change [Unknown]
  - Tachycardia [Unknown]
  - Off label use [Unknown]
  - Weight decreased [Unknown]
  - Hypoaesthesia [Recovering/Resolving]
  - Nausea [Unknown]
